FAERS Safety Report 24808543 (Version 2)
Quarter: 2025Q1

REPORT INFORMATION
  Report Type: Spontaneous
  Country: CH (occurrence: CH)
  Receive Date: 20250106
  Receipt Date: 20250127
  Transmission Date: 20250409
  Serious: Yes (Life-Threatening, Hospitalization)
  Sender: JOHNSON AND JOHNSON
  Company Number: CH-MLMSERVICE-20241223-PI316665-00029-1

PATIENT
  Age: 60 Year
  Weight: 75 kg

DRUGS (9)
  1. ACETAMINOPHEN [Suspect]
     Active Substance: ACETAMINOPHEN
     Indication: Pain
     Route: 048
  2. FLUCLOXACILLIN [Suspect]
     Active Substance: FLUCLOXACILLIN
     Indication: Psoas abscess
     Dosage: CONTINUOUS INFUSION
     Route: 042
  3. FLUCLOXACILLIN [Suspect]
     Active Substance: FLUCLOXACILLIN
     Indication: Intervertebral discitis
  4. FLUCLOXACILLIN [Suspect]
     Active Substance: FLUCLOXACILLIN
     Indication: Staphylococcal infection
  5. METAMIZOLE [Concomitant]
     Active Substance: METAMIZOLE
     Indication: Pain
     Route: 048
  6. OXYCODONE [Concomitant]
     Active Substance: OXYCODONE
     Indication: Pain
  7. KETAMINE [Concomitant]
     Active Substance: KETAMINE
     Indication: Pain
  8. PREDNISONE [Concomitant]
     Active Substance: PREDNISONE
     Indication: Rheumatoid arthritis
     Dosage: INCREASED DOSE
  9. PREDNISONE [Concomitant]
     Active Substance: PREDNISONE

REACTIONS (5)
  - Metabolic acidosis [Recovered/Resolved]
  - Acidosis hyperchloraemic [Recovered/Resolved]
  - Glutathione decreased [Recovering/Resolving]
  - Pyroglutamic acidosis [Recovered/Resolved]
  - Hypoalbuminaemia [Recovering/Resolving]
